FAERS Safety Report 12231346 (Version 3)
Quarter: 2016Q2

REPORT INFORMATION
  Report Type: Report from Study
  Country: IT (occurrence: IT)
  Receive Date: 20160401
  Receipt Date: 20160601
  Transmission Date: 20160815
  Serious: Yes (Other)
  Sender: FDA-Public Use
  Company Number: IT-BAXTER-2016BAX016412

PATIENT
  Age: 32 Month
  Sex: Male

DRUGS (29)
  1. SODIUM METHOTREXATE [Suspect]
     Active Substance: METHOTREXATE SODIUM
     Indication: PROPHYLAXIS
     Route: 037
  2. SODIUM METHOTREXATE [Suspect]
     Active Substance: METHOTREXATE SODIUM
     Dosage: HIGH DOSE
     Route: 065
  3. RITUXIMAB [Suspect]
     Active Substance: RITUXIMAB
     Indication: POST TRANSPLANT LYMPHOPROLIFERATIVE DISORDER
     Route: 042
  4. ARA-C [Suspect]
     Active Substance: CYTARABINE
     Indication: PROPHYLAXIS
     Route: 037
  5. DEXAMETHASONE. [Suspect]
     Active Substance: DEXAMETHASONE
     Route: 065
  6. VINDESINE [Suspect]
     Active Substance: VINDESINE
     Indication: POST TRANSPLANT LYMPHOPROLIFERATIVE DISORDER
     Route: 065
  7. ENDOXAN BAXTER [Suspect]
     Active Substance: CYCLOPHOSPHAMIDE
     Indication: POST TRANSPLANT LYMPHOPROLIFERATIVE DISORDER
     Route: 065
  8. ENDOXAN BAXTER [Suspect]
     Active Substance: CYCLOPHOSPHAMIDE
     Dosage: 160 TO 200MG/M^2 PER DAY X4
     Route: 065
  9. HOLOXAN [Suspect]
     Active Substance: IFOSFAMIDE
     Indication: POST TRANSPLANT LYMPHOPROLIFERATIVE DISORDER
     Dosage: 600 TO 800MG/M^2 PER DAY X5
     Route: 065
  10. METHYLPREDNISOLONE. [Suspect]
     Active Substance: METHYLPREDNISOLONE
     Indication: PROPHYLAXIS
     Route: 037
  11. VINCRISTINE [Suspect]
     Active Substance: VINCRISTINE
     Indication: POST TRANSPLANT LYMPHOPROLIFERATIVE DISORDER
     Route: 065
  12. VP-16 [Suspect]
     Active Substance: ETOPOSIDE
     Dosage: 100 MG/M2, 12 HOUR
     Route: 065
  13. SODIUM METHOTREXATE [Suspect]
     Active Substance: METHOTREXATE SODIUM
     Indication: POST TRANSPLANT LYMPHOPROLIFERATIVE DISORDER
     Dosage: HIGH DOSE
     Route: 065
  14. ARA-C [Suspect]
     Active Substance: CYTARABINE
     Indication: POST TRANSPLANT LYMPHOPROLIFERATIVE DISORDER
     Dosage: 120 TO 150MG/M^2 Q 12 HOURS X4
     Route: 065
  15. ARA-C [Suspect]
     Active Substance: CYTARABINE
     Route: 037
  16. DAUNOMICINA [Suspect]
     Active Substance: DAUNORUBICIN HYDROCHLORIDE
     Indication: POST TRANSPLANT LYMPHOPROLIFERATIVE DISORDER
     Dosage: 20 TO 25 MG/M^2 Q PER DAY X 2
     Route: 065
  17. SODIUM METHOTREXATE [Suspect]
     Active Substance: METHOTREXATE SODIUM
     Route: 037
  18. ARA-C [Suspect]
     Active Substance: CYTARABINE
     Route: 037
  19. VP-16 [Suspect]
     Active Substance: ETOPOSIDE
     Indication: POST TRANSPLANT LYMPHOPROLIFERATIVE DISORDER
     Dosage: 2 CYCLES (BLOCK AA)
     Route: 065
  20. DEXAMETHASONE. [Suspect]
     Active Substance: DEXAMETHASONE
     Route: 065
  21. FLUDARABINE [Suspect]
     Active Substance: FLUDARABINE PHOSPHATE
     Indication: POST TRANSPLANT LYMPHOPROLIFERATIVE DISORDER
     Route: 065
  22. METHYLPREDNISOLONE. [Suspect]
     Active Substance: METHYLPREDNISOLONE
     Route: 037
  23. SODIUM METHOTREXATE [Suspect]
     Active Substance: METHOTREXATE SODIUM
     Route: 037
  24. ARA-C [Suspect]
     Active Substance: CYTARABINE
     Route: 037
  25. METHYLPREDNISOLONE. [Suspect]
     Active Substance: METHYLPREDNISOLONE
     Indication: POST TRANSPLANT LYMPHOPROLIFERATIVE DISORDER
     Route: 037
  26. METHYLPREDNISOLONE. [Suspect]
     Active Substance: METHYLPREDNISOLONE
     Route: 037
  27. DEXAMETHASONE. [Suspect]
     Active Substance: DEXAMETHASONE
     Indication: POST TRANSPLANT LYMPHOPROLIFERATIVE DISORDER
     Route: 065
  28. DOXORUBICIN [Suspect]
     Active Substance: DOXORUBICIN
     Indication: POST TRANSPLANT LYMPHOPROLIFERATIVE DISORDER
     Route: 065
  29. VINCRISTINE [Suspect]
     Active Substance: VINCRISTINE
     Route: 065

REACTIONS (3)
  - Nervous system disorder [Unknown]
  - Acute kidney injury [Unknown]
  - Neurotoxicity [Unknown]
